FAERS Safety Report 4835406-X (Version None)
Quarter: 2005Q4

REPORT INFORMATION
  Report Type: 
  Country: None (occurrence: None)
  Receive Date: 20051118
  Receipt Date: 20051107
  Transmission Date: 20060501
  Serious: Yes (Other)
  Sender: FDA-Public Use
  Company Number: B0400046A

PATIENT
  Age: 16 Year
  Sex: Male

DRUGS (3)
  1. WELLBUTRIN SR [Suspect]
     Indication: DEPRESSION
     Dosage: 100 MG/TWICE PER DAY/ ORAL
     Route: 048
  2. METHYLPHENIDATE HCL [Suspect]
     Indication: ATTENTION DEFICIT/HYPERACTIVITY DISORDER
     Dosage: 30 MG / TWICE PER DAY /
  3. EMGEL [Suspect]
     Indication: ACNE
     Dosage: 999 MG/ PER DAY / ORAL
     Route: 048

REACTIONS (3)
  - DRUG INTERACTION [None]
  - MYOCARDIAL INFARCTION [None]
  - VASOSPASM [None]
